FAERS Safety Report 9841965 (Version 2)
Quarter: 2014Q1

REPORT INFORMATION
  Report Type: Spontaneous
  Country: US (occurrence: US)
  Receive Date: 20140124
  Receipt Date: 20140328
  Transmission Date: 20141002
  Serious: Yes (Death, Other)
  Sender: FDA-Public Use
  Company Number: US-PERRIGO-14US000460

PATIENT
  Age: 40 Year
  Sex: Male
  Weight: 90.7 kg

DRUGS (2)
  1. MINOXIDIL AEROSOL 5% 294 [Suspect]
     Indication: ALOPECIA
     Dosage: HALF CAPFUL, BID
     Route: 061
     Dates: start: 201311, end: 20140105
  2. TAMIFLU [Concomitant]
     Indication: INFLUENZA
     Dosage: UNK, UNK
     Route: 048
     Dates: start: 20131230

REACTIONS (5)
  - Completed suicide [Fatal]
  - Depression [Not Recovered/Not Resolved]
  - Paranoia [Not Recovered/Not Resolved]
  - Abnormal behaviour [Not Recovered/Not Resolved]
  - Drug administered at inappropriate site [Unknown]
